FAERS Safety Report 20486902 (Version 2)
Quarter: 2022Q1

REPORT INFORMATION
  Report Type: Spontaneous
  Country: US (occurrence: US)
  Receive Date: 20220217
  Receipt Date: 20220303
  Transmission Date: 20220423
  Serious: Yes (Hospitalization, Other)
  Sender: FDA-Public Use
  Company Number: US-TEVA-2022-US-2007180

PATIENT
  Age: 22 Year
  Sex: Female

DRUGS (25)
  1. OXYCODONE [Suspect]
     Active Substance: OXYCODONE
     Indication: Pain
     Dosage: 640 MILLIGRAM DAILY; 960 MORPHINE MG EQUIVALENTS
     Route: 048
  2. OXYCODONE [Suspect]
     Active Substance: OXYCODONE
     Dosage: 160MG X 5 ON DAY 2
     Route: 048
  3. OXYCODONE [Suspect]
     Active Substance: OXYCODONE
     Dosage: 160MG X 6 ON DAY 3
     Route: 048
  4. OXYCODONE [Suspect]
     Active Substance: OXYCODONE
     Dosage: 640 MILLIGRAM DAILY; 160MG EVERY 6H X 6 ON DAY 4, 5 AND 8
     Route: 048
  5. OXYCODONE [Suspect]
     Active Substance: OXYCODONE
     Dosage: 640 MILLIGRAM DAILY; 160MG EVERY 6H X 5 ON DAY 6 AND 7
     Route: 048
  6. OXYCODONE [Suspect]
     Active Substance: OXYCODONE
     Dosage: 640 MILLIGRAM DAILY; 160MG EVERY 6H X 4 ON DAY 9
     Route: 048
  7. HYDROMORPHONE [Suspect]
     Active Substance: HYDROMORPHONE
     Indication: Pain
     Dosage: 16 MILLIGRAM DAILY; AS NEEDED ON DAY 1 AND 4
     Route: 042
  8. HYDROMORPHONE [Suspect]
     Active Substance: HYDROMORPHONE
     Dosage: 4MG X 8 ON DAY 2
     Route: 042
  9. HYDROMORPHONE [Suspect]
     Active Substance: HYDROMORPHONE
     Dosage: 4MG X 6 ON DAY 3
     Route: 042
  10. HYDROMORPHONE [Suspect]
     Active Substance: HYDROMORPHONE
     Dosage: PRN X 3 ON DAY 5 AND 6
     Route: 042
  11. HYDROMORPHONE [Suspect]
     Active Substance: HYDROMORPHONE
     Dosage: 16 MILLIGRAM DAILY; PRN X 4 ON DAY 7
     Route: 042
  12. HYDROMORPHONE [Suspect]
     Active Substance: HYDROMORPHONE
     Dosage: 16 MILLIGRAM DAILY; PRN X 3 ON DAY 8
     Route: 042
  13. HYDROMORPHONE [Suspect]
     Active Substance: HYDROMORPHONE
     Dosage: 16 MILLIGRAM DAILY; PRN X 1 ON DAY 9
     Route: 042
  14. HYDROMORPHONE [Suspect]
     Active Substance: HYDROMORPHONE
     Dosage: 128 MILLIGRAM DAILY; PRN X 1 ON DAY 6
     Route: 048
  15. HYDROMORPHONE [Suspect]
     Active Substance: HYDROMORPHONE
     Dosage: 16MG X 1 ON DAY 7
     Route: 048
  16. BUPRENORPHINE\NALOXONE [Suspect]
     Active Substance: BUPRENORPHINE\NALOXONE
     Indication: Pain
     Dosage: 12 DOSAGE FORMS DAILY; EVERY 2H X 4 ON DAY 8 AND 9
     Route: 048
  17. BUPRENORPHINE\NALOXONE [Suspect]
     Active Substance: BUPRENORPHINE\NALOXONE
     Dosage: 12 DOSAGE FORMS DAILY; 8/2MG X 1
     Route: 048
  18. BUPRENORPHINE\NALOXONE [Suspect]
     Active Substance: BUPRENORPHINE\NALOXONE
     Dosage: 3 DOSAGE FORMS DAILY; EVERY 8H X 3
     Route: 048
  19. BUPRENORPHINE\NALOXONE [Suspect]
     Active Substance: BUPRENORPHINE\NALOXONE
     Dosage: 6 DOSAGE FORMS DAILY; EVERY 4H X 6
     Route: 048
  20. LOPERAMIDE [Concomitant]
     Active Substance: LOPERAMIDE
     Indication: Pain
     Route: 065
  21. CLONIDINE [Concomitant]
     Active Substance: CLONIDINE
     Indication: Pain
     Dosage: .8 MILLIGRAM DAILY;
     Route: 065
  22. DIPHENHYDRAMINE [Concomitant]
     Active Substance: DIPHENHYDRAMINE
     Indication: Pain
     Route: 065
  23. ACETAMINOPHEN [Concomitant]
     Active Substance: ACETAMINOPHEN
     Indication: Pain
     Route: 065
  24. IBUPROFEN [Concomitant]
     Active Substance: IBUPROFEN
     Indication: Pain
     Route: 065
  25. TRAZODONE [Concomitant]
     Active Substance: TRAZODONE HYDROCHLORIDE
     Indication: Pain
     Route: 065

REACTIONS (4)
  - Withdrawal syndrome [Recovered/Resolved]
  - Somnolence [Unknown]
  - Mood swings [Unknown]
  - Incorrect route of product administration [Unknown]
